FAERS Safety Report 15844481 (Version 1)
Quarter: 2019Q1

REPORT INFORMATION
  Report Type: Spontaneous
  Country: US (occurrence: US)
  Receive Date: 20190118
  Receipt Date: 20190118
  Transmission Date: 20190417
  Serious: No
  Sender: FDA-Public Use
  Company Number: US-KVK-TECH, INC-2061467

PATIENT
  Sex: Male

DRUGS (1)
  1. OXYCODONE HYDROCHLORIDE. [Suspect]
     Active Substance: OXYCODONE HYDROCHLORIDE
     Indication: PRODUCT USED FOR UNKNOWN INDICATION
     Route: 065

REACTIONS (7)
  - Muscle tightness [Unknown]
  - Insomnia [Unknown]
  - Feeling abnormal [Unknown]
  - Heart rate increased [Unknown]
  - Anxiety [Unknown]
  - Decreased appetite [Unknown]
  - Migraine [Unknown]
